FAERS Safety Report 5825959-7 (Version None)
Quarter: 2008Q3

REPORT INFORMATION
  Report Type: 
  Country: None (occurrence: None)
  Receive Date: 20080729
  Receipt Date: 20080724
  Transmission Date: 20090109
  Serious: Yes (Life-Threatening)
  Sender: FDA-Public Use
  Company Number: PHHY2008JP09437

PATIENT
  Sex: Male

DRUGS (1)
  1. LAMISIL [Suspect]
     Dosage: 125 MG/DAY
     Route: 048
     Dates: start: 20080421, end: 20080514

REACTIONS (4)
  - ALANINE AMINOTRANSFERASE INCREASED [None]
  - ASPARTATE AMINOTRANSFERASE INCREASED [None]
  - GAMMA-GLUTAMYLTRANSFERASE INCREASED [None]
  - HEPATITIS VIRAL [None]
